FAERS Safety Report 5898971-X (Version None)
Quarter: 2008Q3

REPORT INFORMATION
  Report Type: 
  Country: None (occurrence: None)
  Receive Date: 20080925
  Receipt Date: 20080805
  Transmission Date: 20090109
  Serious: Yes (Death)
  Sender: FDA-Public Use
  Company Number: US-PURDUE-USA_2008_0034694

PATIENT
  Age: 40 Year
  Sex: Female

DRUGS (1)
  1. OXYCONTIN [Suspect]
     Indication: PAIN

REACTIONS (4)
  - COMPLETED SUICIDE [None]
  - EXSANGUINATION [None]
  - GUN SHOT WOUND [None]
  - MENTAL IMPAIRMENT [None]
